FAERS Safety Report 4915286-4 (Version None)
Quarter: 2006Q1

REPORT INFORMATION
  Report Type: 
  Country: None (occurrence: None)
  Receive Date: 20060217
  Receipt Date: 20051202
  Transmission Date: 20060701
  Serious: Yes (Hospitalization, Other)
  Sender: FDA-Public Use
  Company Number: US-GLAXOSMITHKLINE-A0585118A

PATIENT
  Age: 41 Year
  Sex: Female

DRUGS (2)
  1. LAMICTAL [Suspect]
     Indication: BIPOLAR DISORDER
     Route: 048
     Dates: start: 20050506, end: 20050705
  2. EFFEXOR [Concomitant]

REACTIONS (5)
  - ALOPECIA [None]
  - DERMATITIS [None]
  - PANCREATIC DISORDER [None]
  - PHARYNGEAL ULCERATION [None]
  - RASH [None]
